FAERS Safety Report 9098482 (Version 1)
Quarter: 2013Q1

REPORT INFORMATION
  Report Type: Spontaneous
  Country: US (occurrence: US)
  Receive Date: 20130213
  Receipt Date: 20130213
  Transmission Date: 20140127
  Serious: No
  Sender: FDA-Public Use
  Company Number: US-TEVA-385711USA

PATIENT
  Age: 27 None
  Sex: Female

DRUGS (1)
  1. COPAXONE [Suspect]
     Indication: MULTIPLE SCLEROSIS
     Dates: start: 20121216, end: 20130131

REACTIONS (6)
  - Paraesthesia [Unknown]
  - Visual impairment [Unknown]
  - Eyelid oedema [Unknown]
  - Lip swelling [Unknown]
  - Gait disturbance [Unknown]
  - Dysphagia [Unknown]
